FAERS Safety Report 5459479-9 (Version None)
Quarter: 2007Q3

REPORT INFORMATION
  Report Type: 
  Country: None (occurrence: None)
  Receive Date: 20070919
  Receipt Date: 20070914
  Transmission Date: 20080115
  Serious: Yes (Other)
  Sender: FDA-Public Use
  Company Number: A0676128A

PATIENT
  Age: 79 Year
  Sex: Male
  Weight: 72.3 kg

DRUGS (18)
  1. ADVAIR DISKUS 100/50 [Suspect]
     Indication: CHRONIC OBSTRUCTIVE PULMONARY DISEASE
     Dosage: 2PUFF TWICE PER DAY
     Route: 055
     Dates: start: 20070701
  2. COMBIVENT [Concomitant]
  3. MUCINEX [Concomitant]
  4. SINGULAIR [Concomitant]
  5. TOPROL-XL [Concomitant]
  6. FLOMAX [Concomitant]
  7. UNSPECIFIED MEDICATION [Concomitant]
  8. INSULIN [Concomitant]
  9. ERGOCALCIFEROL [Concomitant]
  10. REPAGLINIDE [Concomitant]
  11. LIPITOR [Concomitant]
  12. UNSPECIFIED MEDICATION [Concomitant]
  13. VASOTEC [Concomitant]
  14. NIACIN [Concomitant]
  15. ASPIRIN [Concomitant]
  16. DIGOXIN [Concomitant]
  17. VITAMINS [Concomitant]
  18. VALTREX [Concomitant]

REACTIONS (1)
  - HERPES ZOSTER [None]
